FAERS Safety Report 13707349 (Version 1)
Quarter: 2017Q2

REPORT INFORMATION
  Report Type: Report from Study
  Country: None (occurrence: US)
  Receive Date: 20170630
  Receipt Date: 20170630
  Transmission Date: 20170830
  Serious: No
  Sender: FDA-Public Use
  Company Number: US-IPSEN BIOPHARMACEUTICALS, INC.-2013-4992

PATIENT
  Sex: Female
  Weight: 78 kg

DRUGS (4)
  1. ZOLOFT [Concomitant]
     Active Substance: SERTRALINE HYDROCHLORIDE
     Indication: PRODUCT USED FOR UNKNOWN INDICATION
     Route: 065
  2. SOMATULINE DEPOT [Suspect]
     Active Substance: LANREOTIDE ACETATE
     Indication: ACROMEGALY
     Dosage: 90 MG
     Route: 058
     Dates: start: 201307
  3. TOPROL XL [Concomitant]
     Active Substance: METOPROLOL SUCCINATE
     Indication: PRODUCT USED FOR UNKNOWN INDICATION
     Dosage: UNKNOWN DOSE, HIGHER THAT 25 MG
     Route: 065
     Dates: start: 2009
  4. TRAVATAN EYE DROPS [Concomitant]
     Indication: PRODUCT USED FOR UNKNOWN INDICATION
     Dosage: NOT REPORTED
     Route: 065

REACTIONS (9)
  - Asthenia [Unknown]
  - Weight increased [Not Recovered/Not Resolved]
  - Gallbladder non-functioning [Not Recovered/Not Resolved]
  - Hypothyroidism [Unknown]
  - Cholelithiasis [Not Recovered/Not Resolved]
  - Blood glucose decreased [None]
  - Abdominal distension [Not Recovered/Not Resolved]
  - Palpitations [Unknown]
  - Nausea [None]

NARRATIVE: CASE EVENT DATE: 2013
